FAERS Safety Report 7084384-4 (Version None)
Quarter: 2010Q4

REPORT INFORMATION
  Report Type: 
  Country: None (occurrence: None)
  Receive Date: 20101104
  Receipt Date: 20101101
  Transmission Date: 20110411
  Serious: Yes (Other)
  Sender: FDA-Public Use
  Company Number: GB-ROXANE LABORATORIES, INC.-2010-RO-01446RO

PATIENT
  Age: 79 Year
  Sex: Male

DRUGS (8)
  1. ROPINIROLE [Suspect]
     Indication: PARKINSON'S DISEASE
     Dosage: 3 MG
  2. ROPINIROLE [Suspect]
     Dosage: 9 MG
  3. RAMIPRIL [Suspect]
  4. AMLODIPINE [Suspect]
  5. MADOPAR [Suspect]
  6. BISOPROLOL [Suspect]
  7. ASPIRIN [Suspect]
  8. BENDROFLUAZIDE [Suspect]

REACTIONS (1)
  - SOMATIC DELUSION [None]
